FAERS Safety Report 14147664 (Version 4)
Quarter: 2018Q1

REPORT INFORMATION
  Report Type: Report from Study
  Country: US (occurrence: US)
  Receive Date: 20171031
  Receipt Date: 20180227
  Transmission Date: 20180508
  Serious: Yes (Hospitalization)
  Sender: FDA-Public Use
  Company Number: US-ACTELION-A-NJ2017-161608

PATIENT
  Age: 63 Year
  Sex: Female
  Weight: 68.48 kg

DRUGS (2)
  1. UPTRAVI [Suspect]
     Active Substance: SELEXIPAG
     Dosage: 400 MCG, BID
     Route: 048
  2. UPTRAVI [Suspect]
     Active Substance: SELEXIPAG
     Indication: PULMONARY HYPERTENSION
     Dosage: 200 MCG, BID
     Route: 048

REACTIONS (9)
  - Trismus [Unknown]
  - Bone pain [Unknown]
  - Pain in jaw [Unknown]
  - Headache [Unknown]
  - Renal failure [Unknown]
  - Blood potassium increased [Unknown]
  - Dry mouth [Unknown]
  - Angioedema [Unknown]
  - Pain [Unknown]
